FAERS Safety Report 5647072-4 (Version None)
Quarter: 2008Q1

REPORT INFORMATION
  Report Type: 
  Country: None (occurrence: None)
  Receive Date: 20080303
  Receipt Date: 20080221
  Transmission Date: 20080703
  Serious: Yes (Other)
  Sender: FDA-Public Use
  Company Number: US-JNJFOC-20080205938

PATIENT
  Sex: Female
  Weight: 53.07 kg

DRUGS (3)
  1. DURAGESIC-100 [Suspect]
     Indication: INTERVERTEBRAL DISC PROTRUSION
     Dosage: 2 X 100UG/HR PATCHES
     Route: 062
  2. PERCOCET [Concomitant]
     Indication: PAIN
     Route: 048
  3. ZYRTEC [Concomitant]
     Indication: SEASONAL ALLERGY
     Route: 048

REACTIONS (7)
  - ANOREXIA [None]
  - DRUG ADMINISTERED AT INAPPROPRIATE SITE [None]
  - DYSPEPSIA [None]
  - INAPPROPRIATE SCHEDULE OF DRUG ADMINISTRATION [None]
  - INTERVERTEBRAL DISC PROTRUSION [None]
  - JOINT SWELLING [None]
  - NAUSEA [None]
